FAERS Safety Report 5705855-6 (Version None)
Quarter: 2008Q2

REPORT INFORMATION
  Report Type: 
  Country: None (occurrence: None)
  Receive Date: 20080411
  Receipt Date: 20080328
  Transmission Date: 20081010
  Serious: Yes (Other)
  Sender: FDA-Public Use
  Company Number: 2008US001001

PATIENT
  Age: 39 Year
  Sex: Female

DRUGS (2)
  1. PROGRAF [Suspect]
     Indication: PROPHYLAXIS AGAINST GRAFT VERSUS HOST DISEASE
  2. METHOTREXATE [Concomitant]

REACTIONS (5)
  - ASTHENIA [None]
  - BEDRIDDEN [None]
  - DIPLOPIA [None]
  - GUILLAIN-BARRE SYNDROME [None]
  - LEUKAEMIA [None]
